FAERS Safety Report 7379842-9 (Version None)
Quarter: 2011Q1

REPORT INFORMATION
  Report Type: 
  Country: None (occurrence: None)
  Receive Date: 20110318
  Receipt Date: 20110310
  Transmission Date: 20110831
  Serious: Yes (Hospitalization)
  Sender: FDA-Public Use
  Company Number: 114167

PATIENT
  Age: 35 Year
  Sex: Female

DRUGS (1)
  1. PHENTOLAMINE MESYLATE [Suspect]
     Indication: CAESAREAN SECTION
     Dosage: 0.5ML/IV
     Route: 042

REACTIONS (3)
  - WRONG DRUG ADMINISTERED [None]
  - MEDICATION ERROR [None]
  - BLOOD PRESSURE SYSTOLIC DECREASED [None]
